FAERS Safety Report 25190835 (Version 1)
Quarter: 2025Q2

REPORT INFORMATION
  Report Type: Spontaneous
  Country: US (occurrence: US)
  Receive Date: 20250411
  Receipt Date: 20250411
  Transmission Date: 20250716
  Serious: Yes (Hospitalization)
  Sender: DR REDDYS
  Company Number: US-DRL-USA-USA/2025/04/005254

PATIENT
  Sex: Female

DRUGS (2)
  1. LENALIDOMIDE [Suspect]
     Active Substance: LENALIDOMIDE
     Indication: Product used for unknown indication
     Route: 065
  2. POMALYST [Concomitant]
     Active Substance: POMALIDOMIDE
     Indication: Product used for unknown indication
     Route: 065
     Dates: start: 20250217

REACTIONS (2)
  - Pain [Unknown]
  - Pruritus [Unknown]
